FAERS Safety Report 18705259 (Version 2)
Quarter: 2021Q1

REPORT INFORMATION
  Report Type: Spontaneous
  Country: BE (occurrence: BE)
  Receive Date: 20210106
  Receipt Date: 20210125
  Transmission Date: 20210419
  Serious: Yes (Hospitalization)
  Sender: FDA-Public Use
  Company Number: BE-AUROBINDO-AUR-APL-2020-064356

PATIENT
  Age: 68 Year
  Sex: Male
  Weight: 52 kg

DRUGS (6)
  1. CETUXIMAB. [Suspect]
     Active Substance: CETUXIMAB
     Dosage: 800 MILLIGRAM
     Route: 042
     Dates: start: 20201203
  2. AVELUMAB [Suspect]
     Active Substance: AVELUMAB
     Indication: COLORECTAL CANCER METASTATIC
     Dosage: 540 MILLIGRAM
     Route: 042
     Dates: start: 20201022
  3. AVELUMAB [Suspect]
     Active Substance: AVELUMAB
     Dosage: 540 MILLIGRAM
     Route: 042
     Dates: start: 20201203
  4. CETUXIMAB. [Suspect]
     Active Substance: CETUXIMAB
     Indication: COLORECTAL CANCER METASTATIC
     Dosage: 650 MILLIGRAM
     Route: 042
     Dates: start: 20201008
  5. IRINOTECAN CONCENTRATE FOR SOLUTION FOR INFUSION [Suspect]
     Active Substance: IRINOTECAN
     Dosage: 150 MILLIGRAM/SQ. METER
     Route: 042
     Dates: start: 20201203
  6. IRINOTECAN CONCENTRATE FOR SOLUTION FOR INFUSION [Suspect]
     Active Substance: IRINOTECAN
     Indication: COLORECTAL CANCER METASTATIC
     Dosage: 150 MILLIGRAM/SQ. METER
     Route: 042
     Dates: start: 20201008

REACTIONS (6)
  - Nausea [Unknown]
  - Hypocalcaemia [Unknown]
  - General physical health deterioration [Recovered/Resolved]
  - Diarrhoea [Unknown]
  - Dehydration [Not Recovered/Not Resolved]
  - Hypomagnesaemia [Unknown]

NARRATIVE: CASE EVENT DATE: 20201214
